FAERS Safety Report 10084024 (Version 1)
Quarter: 2014Q2

REPORT INFORMATION
  Report Type: Spontaneous
  Country: DE (occurrence: None)
  Receive Date: 20140415
  Receipt Date: 20140415
  Transmission Date: 20141212
  Serious: Yes (Other)
  Sender: FDA-Public Use
  Company Number: 2014P1002968

PATIENT
  Age: 12 Day
  Sex: Female
  Weight: .54 kg

DRUGS (1)
  1. DEXAMETHASONE [Suspect]
     Indication: NEONATAL RESPIRATORY DISTRESS SYNDROME

REACTIONS (3)
  - Poor peripheral circulation [None]
  - Cardiac hypertrophy [None]
  - Hypertrophic cardiomyopathy [None]
